FAERS Safety Report 22005109 (Version 2)
Quarter: 2023Q1

REPORT INFORMATION
  Report Type: Report from Study
  Country: TR (occurrence: TR)
  Receive Date: 20230217
  Receipt Date: 20230301
  Transmission Date: 20230418
  Serious: Yes (Death, Hospitalization)
  Sender: FDA-Public Use
  Company Number: TR-JAZZ-2023-TR-002080

PATIENT
  Age: 59 Year
  Sex: Female
  Weight: 76 kg

DRUGS (21)
  1. LURBINECTEDIN [Suspect]
     Active Substance: LURBINECTEDIN
     Indication: Small cell lung cancer extensive stage
     Dosage: 5.6 MILLIGRAM, 1 IN EVERY  3 WEEKS
     Route: 042
     Dates: start: 20221115
  2. LURBINECTEDIN [Suspect]
     Active Substance: LURBINECTEDIN
     Dosage: 5.6 MILLIGRAM, 1 IN EVERY  3 WEEKS
     Route: 042
     Dates: start: 20221215
  3. ATEZOLIZUMAB [Suspect]
     Active Substance: ATEZOLIZUMAB
     Indication: Small cell lung cancer extensive stage
     Dosage: UNK
     Route: 042
     Dates: start: 20220818
  4. ATEZOLIZUMAB [Suspect]
     Active Substance: ATEZOLIZUMAB
     Dosage: 1200 MILLIGRAM, 1 IN 21 D
     Route: 042
     Dates: start: 20221215
  5. ETOPOSIDE [Suspect]
     Active Substance: ETOPOSIDE
     Indication: Small cell lung cancer extensive stage
     Dosage: 160 MILLIGRAM
     Route: 042
     Dates: start: 20220818, end: 20221020
  6. ETOPOSIDE [Suspect]
     Active Substance: ETOPOSIDE
     Dosage: 160 MILLIGRAM, OTHER
     Dates: start: 20221020
  7. CARBOPLATIN [Suspect]
     Active Substance: CARBOPLATIN
     Indication: Small cell lung cancer extensive stage
     Dosage: UNK
     Dates: start: 20220818
  8. CARBOPLATIN [Suspect]
     Active Substance: CARBOPLATIN
     Dosage: 500 MILLIGRAM, 1 IN 3 WEEK
     Route: 042
     Dates: start: 20221018
  9. ATACAND [Concomitant]
     Active Substance: CANDESARTAN CILEXETIL
     Indication: Hypertension
     Dosage: 1 IN 1 D
     Route: 058
     Dates: start: 1991
  10. PANTO [PANTHENOL] [Concomitant]
     Active Substance: PANTHENOL
     Indication: Pneumonia
     Dosage: UNK
     Dates: start: 20220712
  11. AVIL [PHENIRAMINE MALEATE] [Concomitant]
     Dosage: UNK
     Dates: start: 20220818
  12. EMETRIL [Concomitant]
     Indication: Nausea
     Dosage: UNK
     Dates: start: 20220818
  13. EMETRIL [Concomitant]
     Indication: Vomiting
  14. DEKORT [Concomitant]
     Active Substance: DEXAMETHASONE
     Dosage: 2 MILLILITER, 1 IN 1 M
     Route: 042
     Dates: start: 20220818
  15. GRANITRON [Concomitant]
     Indication: Nausea
     Dosage: UNK
     Dates: start: 20220818
  16. GRANITRON [Concomitant]
     Indication: Vomiting
  17. FRAVEN [Concomitant]
     Indication: Leukopenia
     Dosage: DOSE: 48 OTHER (1 IN 3 WK)
     Route: 058
     Dates: start: 20220822
  18. ASPIRIN [Concomitant]
     Active Substance: ASPIRIN
     Dosage: UNK
     Dates: start: 201901
  19. TYGEX [Concomitant]
     Dosage: UNK
     Dates: start: 20230119, end: 20230126
  20. METHYLPREDNISOLONE [Concomitant]
     Active Substance: METHYLPREDNISOLONE
     Dosage: 16 MILLIGRAM, TID (3 IN 1 D)
     Route: 048
     Dates: start: 20221217
  21. PAROL [Concomitant]
     Active Substance: ACETAMINOPHEN
     Dosage: UNK
     Dates: start: 20230119, end: 20230119

REACTIONS (2)
  - C-reactive protein increased [Fatal]
  - Thrombocytopenia [Fatal]

NARRATIVE: CASE EVENT DATE: 20230119
